FAERS Safety Report 21416859 (Version 6)
Quarter: 2025Q2

REPORT INFORMATION
  Report Type: Report from Study
  Country: US (occurrence: US)
  Receive Date: 20221006
  Receipt Date: 20250626
  Transmission Date: 20250717
  Serious: Yes (Other)
  Sender: TAKEDA
  Company Number: US-TAKEDA-2021TUS065147

PATIENT
  Age: 71 Year
  Sex: Male

DRUGS (6)
  1. HEMOFIL [Suspect]
     Active Substance: ANTIHEMOPHILIC FACTOR HUMAN
     Indication: Anticoagulant therapy
  2. HEMOFIL [Suspect]
     Active Substance: ANTIHEMOPHILIC FACTOR HUMAN
     Indication: Haemorrhage
  3. HEMOFIL [Suspect]
     Active Substance: ANTIHEMOPHILIC FACTOR HUMAN
     Dosage: 3100 INTERNATIONAL UNIT, 2/WEEK
  4. HEMOFIL [Suspect]
     Active Substance: ANTIHEMOPHILIC FACTOR HUMAN
  5. HEMOFIL [Suspect]
     Active Substance: ANTIHEMOPHILIC FACTOR HUMAN
  6. HEMOFIL [Suspect]
     Active Substance: ANTIHEMOPHILIC FACTOR HUMAN

REACTIONS (9)
  - Haemorrhage [Recovered/Resolved]
  - Haemarthrosis [Not Recovered/Not Resolved]
  - Cancer screening abnormal [Unknown]
  - Skin laceration [Unknown]
  - Nasopharyngitis [Unknown]
  - Sinusitis [Unknown]
  - Joint injury [Unknown]
  - Platelet count decreased [Unknown]
  - Extra dose administered [Unknown]

NARRATIVE: CASE EVENT DATE: 20211012
